FAERS Safety Report 10207182 (Version 1)
Quarter: 2014Q2

REPORT INFORMATION
  Report Type: Spontaneous
  Country: US (occurrence: None)
  Receive Date: 20140528
  Receipt Date: 20140528
  Transmission Date: 20141212
  Serious: No
  Sender: FDA-Public Use
  Company Number: None

PATIENT
  Sex: Female
  Weight: 64.41 kg

DRUGS (4)
  1. CEFDINIR [Suspect]
     Indication: RESPIRATORY TRACT CONGESTION
     Dosage: 1 CAPSULE
     Route: 048
     Dates: start: 20140428, end: 20140429
  2. CEFDINIR [Suspect]
     Indication: NASOPHARYNGITIS
     Dosage: 1 CAPSULE
     Route: 048
     Dates: start: 20140428, end: 20140429
  3. CARVEDILOL [Concomitant]
  4. SYNTHROID [Concomitant]

REACTIONS (4)
  - Diarrhoea [None]
  - Urine output decreased [None]
  - Headache [None]
  - Muscular weakness [None]
